FAERS Safety Report 4385619-9 (Version None)
Quarter: 2004Q2

REPORT INFORMATION
  Report Type: 
  Country: None (occurrence: None)
  Receive Date: 20040625
  Receipt Date: 20040625
  Transmission Date: 20050107
  Serious: Yes (Hospitalization)
  Sender: FDA-Public Use
  Company Number: None

PATIENT
  Age: 66 Year
  Sex: Male
  Weight: 74.3899 kg

DRUGS (1)
  1. PROTONIX [Suspect]
     Indication: OESOPHAGITIS
     Dosage: 1 BY MOUTH DAILY
     Route: 048
     Dates: start: 20040421, end: 20040516

REACTIONS (6)
  - ARTHRALGIA [None]
  - BACK PAIN [None]
  - CHEST PAIN [None]
  - DYSPNOEA [None]
  - FATIGUE [None]
  - NAUSEA [None]
